FAERS Safety Report 12745325 (Version 1)
Quarter: 2016Q3

REPORT INFORMATION
  Report Type: Spontaneous
  Country: US (occurrence: US)
  Receive Date: 20160914
  Receipt Date: 20160914
  Transmission Date: 20161109
  Serious: Yes (Hospitalization)
  Sender: FDA-Public Use
  Company Number: None

PATIENT
  Age: 53 Year
  Sex: Male

DRUGS (1)
  1. AMPYRA [Suspect]
     Active Substance: DALFAMPRIDINE
     Indication: MULTIPLE SCLEROSIS
     Route: 048
     Dates: start: 20160711

REACTIONS (5)
  - Urinary tract infection [None]
  - Muscular weakness [None]
  - Pollakiuria [None]
  - Chromaturia [None]
  - Sepsis [None]

NARRATIVE: CASE EVENT DATE: 20160912
